FAERS Safety Report 4390272-4 (Version None)
Quarter: 2004Q2

REPORT INFORMATION
  Report Type: 
  Country: None (occurrence: None)
  Receive Date: 20040630
  Receipt Date: 20040616
  Transmission Date: 20050107
  Serious: Yes (Disabling)
  Sender: FDA-Public Use
  Company Number: A01200402814

PATIENT
  Age: 60 Year
  Sex: Male

DRUGS (3)
  1. PLAVIX [Suspect]
     Dosage: 75 MG QD ORAL
     Route: 048
  2. NORVASC [Suspect]
     Dosage: 5 MG QD A FEW DAYS
  3. LIPITOR [Concomitant]

REACTIONS (1)
  - MYALGIA [None]
